FAERS Safety Report 6619882-8 (Version None)
Quarter: 2010Q1

REPORT INFORMATION
  Report Type: 
  Country: None (occurrence: None)
  Receive Date: 20100309
  Receipt Date: 20100225
  Transmission Date: 20100710
  Serious: Yes (Other)
  Sender: FDA-Public Use
  Company Number: US-BAYER-201012272BCC

PATIENT
  Age: 60 Year
  Sex: Female
  Weight: 91 kg

DRUGS (25)
  1. ASPIRIN [Suspect]
     Indication: DRUG USE FOR UNKNOWN INDICATION
     Route: 065
  2. PLAVIX [Suspect]
     Indication: STENT PLACEMENT
     Route: 065
     Dates: start: 20091124
  3. PLAVIX [Suspect]
     Route: 065
     Dates: start: 20091008, end: 20091022
  4. CYMBALTA [Suspect]
     Indication: DRUG USE FOR UNKNOWN INDICATION
     Route: 065
     Dates: end: 20091012
  5. CYMBALTA [Suspect]
     Route: 065
     Dates: start: 20091030, end: 20091103
  6. CYMBALTA [Suspect]
     Route: 065
     Dates: start: 20091127
  7. CRESTOR [Concomitant]
     Route: 065
  8. BYSTOLIC [Concomitant]
     Route: 065
     Dates: start: 20091218
  9. PRILOSEC [Concomitant]
     Route: 065
  10. THYROID TAB [Concomitant]
     Route: 065
  11. XANAX [Concomitant]
     Route: 065
  12. PROGESTERONE [Concomitant]
     Route: 065
  13. PATANOL [Concomitant]
     Route: 065
  14. ATROVENT [Concomitant]
     Route: 065
  15. LORATADINE [Concomitant]
     Route: 065
  16. SIMVASTATIN [Concomitant]
     Route: 065
     Dates: start: 20091004, end: 20091021
  17. CENOVIS MEGA-MULTI [Concomitant]
     Route: 065
  18. CALCIUM [Concomitant]
     Route: 065
  19. ESTER-C [Concomitant]
     Route: 065
  20. VITAMIN D [Concomitant]
     Route: 065
  21. FISH OIL [Concomitant]
     Route: 065
  22. FLAXSEED OIL [Concomitant]
     Route: 065
  23. EVENING PRIMROSE OIL [Concomitant]
     Route: 065
  24. GLUCOSAMINE [Concomitant]
     Route: 065
  25. ACAI BERRY [Concomitant]
     Route: 065

REACTIONS (17)
  - BLEEDING TIME PROLONGED [None]
  - BLOOD PRESSURE INCREASED [None]
  - BURNING SENSATION [None]
  - CHEST PAIN [None]
  - DYSPNOEA [None]
  - EPHELIDES [None]
  - GROIN PAIN [None]
  - HEMICEPHALALGIA [None]
  - MALAISE [None]
  - MUSCULOSKELETAL PAIN [None]
  - OROPHARYNGEAL PAIN [None]
  - PAIN IN EXTREMITY [None]
  - PETECHIAE [None]
  - RASH [None]
  - RASH MACULAR [None]
  - RECTAL HAEMORRHAGE [None]
  - SKIN DISORDER [None]
